FAERS Safety Report 8445735-9 (Version None)
Quarter: 2012Q2

REPORT INFORMATION
  Report Type: 
  Country: None (occurrence: None)
  Receive Date: 20120618
  Receipt Date: 20120613
  Transmission Date: 20120825
  Serious: Yes (Hospitalization)
  Sender: FDA-Public Use
  Company Number: JP-GLAXOSMITHKLINE-B0790896A

PATIENT
  Sex: Female
  Weight: 46 kg

DRUGS (6)
  1. VALTREX [Suspect]
     Indication: HERPES ZOSTER
     Dosage: 2000MG PER DAY
     Route: 048
     Dates: start: 20120309, end: 20120315
  2. RISEDRONATE SODIUM [Concomitant]
     Indication: OSTEOPOROSIS
     Route: 048
  3. LENDORMIN [Concomitant]
     Indication: INSOMNIA
     Dosage: .25MG PER DAY
     Route: 048
  4. CANDESARTAN CILEXETIL [Concomitant]
     Indication: HYPERTENSION
     Dosage: 8MG PER DAY
     Route: 048
     Dates: end: 20120104
  5. AMLODIPINE [Concomitant]
     Indication: HYPERTENSION
     Dosage: 2.5MG PER DAY
     Route: 048
     Dates: end: 20111019
  6. EDIROL [Concomitant]
     Indication: OSTEOPOROSIS
     Dosage: .75MG PER DAY
     Route: 048

REACTIONS (10)
  - ABASIA [None]
  - ACTIVITIES OF DAILY LIVING IMPAIRED [None]
  - HEMISENSORY NEGLECT [None]
  - RETROGRADE AMNESIA [None]
  - DISTURBANCE IN ATTENTION [None]
  - DIZZINESS [None]
  - ABNORMAL BEHAVIOUR [None]
  - MENTAL IMPAIRMENT [None]
  - ENCEPHALOPATHY [None]
  - APRAXIA [None]
